FAERS Safety Report 22534349 (Version 1)
Quarter: 2023Q2

REPORT INFORMATION
  Report Type: Spontaneous
  Country: FR (occurrence: FR)
  Receive Date: 20230608
  Receipt Date: 20230608
  Transmission Date: 20230722
  Serious: Yes (Hospitalization)
  Sender: FDA-Public Use
  Company Number: None

PATIENT
  Age: 61 Year
  Sex: Male
  Weight: 72 kg

DRUGS (3)
  1. CLOZAPINE [Suspect]
     Active Substance: CLOZAPINE
     Indication: Medication error
     Route: 065
     Dates: start: 20230419, end: 20230419
  2. LOXAPINE [Suspect]
     Active Substance: LOXAPINE
     Indication: Medication error
     Route: 065
     Dates: start: 20230419, end: 20230419
  3. OXAZEPAM [Suspect]
     Active Substance: OXAZEPAM
     Indication: Medication error
     Route: 065
     Dates: start: 20230419, end: 20230419

REACTIONS (5)
  - Coma [Recovered/Resolved]
  - Respiratory distress [Recovered/Resolved]
  - Somnolence [Recovered/Resolved]
  - Vomiting [Recovered/Resolved]
  - Wrong patient received product [Recovered/Resolved]

NARRATIVE: CASE EVENT DATE: 20230419
